FAERS Safety Report 19211151 (Version 1)
Quarter: 2021Q2

REPORT INFORMATION
  Report Type: Report from Study
  Country: US (occurrence: US)
  Receive Date: 20210504
  Receipt Date: 20210504
  Transmission Date: 20210717
  Serious: Yes (Other)
  Sender: FDA-Public Use
  Company Number: US-TAKEDA-US202004143

PATIENT
  Sex: Female

DRUGS (2)
  1. HUMAN NORMAL IMMUNOGLOBULIN; LIQUID [Suspect]
     Active Substance: HUMAN IMMUNOGLOBULIN G
     Dosage: 10 GRAM, 1X/WEEK
     Route: 058
  2. HUMAN NORMAL IMMUNOGLOBULIN; LIQUID [Suspect]
     Active Substance: HUMAN IMMUNOGLOBULIN G
     Indication: IMMUNODEFICIENCY COMMON VARIABLE
     Dosage: 35 GRAM, 1X A MONTH
     Route: 042

REACTIONS (12)
  - Neuropathy peripheral [Unknown]
  - Vasculitis [Unknown]
  - Infusion related reaction [Unknown]
  - Mast cell activation syndrome [Unknown]
  - Trigeminal neuralgia [Unknown]
  - Antiphospholipid syndrome [Unknown]
  - Lyme disease [Unknown]
  - Behcet^s syndrome [Unknown]
  - Thyroid function test abnormal [Unknown]
  - Rheumatoid arthritis [Unknown]
  - Postural orthostatic tachycardia syndrome [Unknown]
  - Autoimmune hepatitis [Unknown]
